FAERS Safety Report 18224930 (Version 1)
Quarter: 2020Q3

REPORT INFORMATION
  Report Type: Report from Study
  Country: CA (occurrence: CA)
  Receive Date: 20200902
  Receipt Date: 20200902
  Transmission Date: 20201103
  Serious: Yes (Death)
  Sender: FDA-Public Use
  Company Number: CA-REGENERON PHARMACEUTICALS, INC.-2020-73345

PATIENT

DRUGS (1)
  1. EYLEA [Suspect]
     Active Substance: AFLIBERCEPT
     Indication: NEOVASCULAR AGE-RELATED MACULAR DEGENERATION
     Dosage: UNK. TOTAL DOSE OF EYLEA PRIOR TO THE EVENT IS UNK. DATE OF LAST DOSE OF EYLEA BEFORE THE EVENT IS U
     Route: 031
     Dates: start: 20140723

REACTIONS (1)
  - Death [Fatal]
